FAERS Safety Report 17195109 (Version 1)
Quarter: 2020Q1

REPORT INFORMATION
  Report Type: Spontaneous
  Country: US (occurrence: US)
  Receive Date: 20191223
  Receipt Date: 20191223
  Transmission Date: 20200409
  Serious: No
  Sender: FDA-Public Use
  Company Number: None

PATIENT
  Age: 47 Year
  Sex: Female
  Weight: 65.25 kg

DRUGS (9)
  1. MIGLIEF (MAGNESIUM AND FEVERFEW) [Concomitant]
  2. VITAMIN D [Concomitant]
     Active Substance: VITAMIN D NOS
  3. TUMERIC [Concomitant]
     Active Substance: HERBALS\TURMERIC
  4. EMGALITY [Concomitant]
     Active Substance: GALCANEZUMAB-GNLM
  5. JANELL (BIRTH CONTROL) [Concomitant]
  6. ONE A DAY FOR WOMEN [Concomitant]
  7. SENOKLOT [Concomitant]
  8. NORTRIPTYLINE 30MG [Concomitant]
  9. EMGALITY [Suspect]
     Active Substance: GALCANEZUMAB-GNLM
     Indication: MIGRAINE
     Dosage: ?          QUANTITY:1 INJECTION(S);OTHER FREQUENCY:ONCE A MONTH;OTHER ROUTE:INJECTED INTO BELLY AREA?
     Dates: start: 20190930

REACTIONS (1)
  - Alopecia [None]

NARRATIVE: CASE EVENT DATE: 20191001
